FAERS Safety Report 20668152 (Version 2)
Quarter: 2022Q2

REPORT INFORMATION
  Report Type: Spontaneous
  Country: AT (occurrence: AT)
  Receive Date: 20220404
  Receipt Date: 20220420
  Transmission Date: 20220721
  Serious: Yes (Hospitalization, Other)
  Sender: FDA-Public Use
  Company Number: AT-SA-SAC20220328000295

PATIENT
  Age: 54 Year
  Sex: Female

DRUGS (2)
  1. AUBAGIO [Suspect]
     Active Substance: TERIFLUNOMIDE
     Indication: Multiple sclerosis
     Dosage: 14 MG, QD
     Dates: start: 201609, end: 20220323
  2. AMISULPRIDE [Concomitant]
     Active Substance: AMISULPRIDE

REACTIONS (2)
  - Uterine cancer [Unknown]
  - Schizophrenia [Unknown]

NARRATIVE: CASE EVENT DATE: 20220310
